FAERS Safety Report 7812994 (Version 3)
Quarter: 2012Q4

REPORT INFORMATION
  Report Type: 
  Country: DK (occurrence: DK)
  Receive Date: 20110215
  Receipt Date: 20121121
  Transmission Date: 20130627
  Serious: Yes (Life-Threatening, Hospitalization, Disabling, Other)
  Sender: FDA-Public Use
  Company Number: DK-WATSON-2011-01864

PATIENT
  Age: 31 Year
  Sex: Female

DRUGS (5)
  1. CIPROFLOXACIN HYDROCHLORIDE [Suspect]
     Indication: DIARRHOEA
     Dosage: 1 DF, single, film coated tablet
     Route: 048
     Dates: start: 20101006, end: 20101006
  2. PRIMPERAN                          /00041901/ [Suspect]
     Indication: NAUSEA
     Dosage: 1 DF, single, tablets
     Route: 048
     Dates: start: 20101006, end: 20101006
  3. PRIMPERAN                          /00041901/ [Suspect]
     Indication: DIARRHOEA
  4. DEPRAKINE                          /00228501/ [Suspect]
     Indication: EPILEPSY
     Dosage: Dosage Form: Tablet, since 15 years.
     Route: 048
     Dates: start: 19950101, end: 20101009
  5. IMODIUM [Suspect]
     Indication: DIARRHOEA
     Dosage: 2 mg, single
     Route: 048
     Dates: start: 20101006, end: 20101006

REACTIONS (12)
  - Toxic epidermal necrolysis [Recovered/Resolved with Sequelae]
  - Dry eye [Not Recovered/Not Resolved]
  - Visual acuity reduced [Not Recovered/Not Resolved]
  - Activities of daily living impaired [Not Recovered/Not Resolved]
  - Corneal perforation [Recovered/Resolved with Sequelae]
  - Oropharyngeal pain [Unknown]
  - Oral candidiasis [Unknown]
  - Pyrexia [Unknown]
  - Pneumonia [Unknown]
  - Diarrhoea [None]
  - Nausea [None]
  - Drug interaction [None]
